FAERS Safety Report 25261922 (Version 1)
Quarter: 2025Q2

REPORT INFORMATION
  Report Type: Report from Study
  Country: CA (occurrence: CA)
  Receive Date: 20250502
  Receipt Date: 20250502
  Transmission Date: 20250716
  Serious: Yes (Other)
  Sender: TAKEDA
  Company Number: CA-TAKEDA-2025TUS019466

PATIENT
  Sex: Male

DRUGS (4)
  1. VEDOLIZUMAB [Suspect]
     Active Substance: VEDOLIZUMAB
     Indication: Crohn^s disease
  2. FLAGYL [Concomitant]
     Active Substance: METRONIDAZOLE\METRONIDAZOLE HYDROCHLORIDE
     Indication: Pouchitis
     Dosage: 500 MILLIGRAM, BID
     Dates: start: 20241022
  3. CIPROFLOXACIN [Concomitant]
     Active Substance: CIPROFLOXACIN
     Dosage: 500 MILLIGRAM, BID
     Dates: start: 20241022
  4. Salofalk [Concomitant]

REACTIONS (4)
  - Anal abscess [Not Recovered/Not Resolved]
  - Diarrhoea [Not Recovered/Not Resolved]
  - Pouchitis [Unknown]
  - Malaise [Unknown]
